FAERS Safety Report 13910430 (Version 1)
Quarter: 2017Q3

REPORT INFORMATION
  Report Type: Spontaneous
  Country: US (occurrence: US)
  Receive Date: 20170828
  Receipt Date: 20170828
  Transmission Date: 20171127
  Serious: No
  Sender: FDA-Public Use
  Company Number: US-ALLERGAN-1672538US

PATIENT
  Sex: Female

DRUGS (1)
  1. FETZIMA [Suspect]
     Active Substance: LEVOMILNACIPRAN HYDROCHLORIDE
     Indication: MAJOR DEPRESSION
     Dosage: 80 MG, QD
     Route: 048

REACTIONS (2)
  - Off label use [Unknown]
  - Drug effect decreased [Unknown]
